FAERS Safety Report 15954086 (Version 3)
Quarter: 2019Q1

REPORT INFORMATION
  Report Type: Report from Study
  Country: US (occurrence: US)
  Receive Date: 20190212
  Receipt Date: 20190328
  Transmission Date: 20190417
  Serious: Yes (Hospitalization)
  Sender: FDA-Public Use
  Company Number: US-PFIZER INC-2019056223

PATIENT
  Age: 9 Year
  Sex: Female
  Weight: 23.8 kg

DRUGS (12)
  1. CYCLOPHOSPHAMIDE. [Suspect]
     Active Substance: CYCLOPHOSPHAMIDE
     Dosage: TOTAL DOSE ADMINISTERED THIS COURSE, 1152 MG, CYCLE 10
     Route: 042
     Dates: end: 20181123
  2. DRONABINOL. [Concomitant]
     Active Substance: DRONABINOL
     Dosage: 2.5 MG, 2X/DAY
     Route: 048
     Dates: start: 20181101
  3. GABAPENTIN. [Concomitant]
     Active Substance: GABAPENTIN
     Dosage: 10 ML (250MG/5 ML), 3X/DAY (EVERY 8 HOURS)
     Dates: start: 20181116
  4. MELATONIN [Concomitant]
     Active Substance: MELATONIN
     Dosage: 5 MG, 1X/DAY NIGHTLY
     Route: 048
  5. IRINOTECAN HCL [Suspect]
     Active Substance: IRINOTECAN HYDROCHLORIDE
     Dosage: TOTAL DOSE ADMINISTERED THIS COURSE, 0 MG, CYCLE 10
     Route: 042
     Dates: end: 20181106
  6. SUCRALFATE. [Concomitant]
     Active Substance: SUCRALFATE
     Dosage: 5 ML, 4X/DAY
     Dates: start: 20180824
  7. ESCITALOPRAM OXALATE. [Concomitant]
     Active Substance: ESCITALOPRAM OXALATE
     Dosage: 15 ML (5 MG/5 ML), DAILY
     Route: 048
     Dates: start: 20181107
  8. DACTINOMYCIN [Suspect]
     Active Substance: DACTINOMYCIN
     Dosage: TOTAL DOSE ADMINISTERED THIS COURSE, 1.255 MG, CYCLE 10
     Route: 042
     Dates: end: 20181123
  9. SULFAMETHOXAZOLE AND TRIMETHOPRIM [Concomitant]
     Active Substance: SULFAMETHOXAZOLE\TRIMETHOPRIM
     Dosage: 7.5 ML (200-40 MG/5 ML), 2X/DAY
     Route: 048
     Dates: start: 20181121
  10. TEMSIROLIMUS. [Suspect]
     Active Substance: TEMSIROLIMUS
     Dosage: TOTAL DOSE ADMINISTERED THIS COURSE, 42.8 MG, CYCLE 10
     Route: 042
     Dates: start: 20180428, end: 20181123
  11. VINCRISTINE SULFATE. [Suspect]
     Active Substance: VINCRISTINE SULFATE
     Dosage: TOTAL DOSE ADMINISTERED THIS COURSE, 1.44 MG, CYCLE 10, INFUSION VIA MINIBAG
     Route: 042
     Dates: end: 20181123
  12. FAMOTIDINE. [Concomitant]
     Active Substance: FAMOTIDINE
     Dosage: 2.5 ML, 2X/DAY
     Route: 048
     Dates: start: 20180925

REACTIONS (1)
  - Dehydration [Recovered/Resolved]

NARRATIVE: CASE EVENT DATE: 20181126
